FAERS Safety Report 4382464-5 (Version None)
Quarter: 2004Q2

REPORT INFORMATION
  Report Type: 
  Country: None (occurrence: None)
  Receive Date: 20040617
  Receipt Date: 20040611
  Transmission Date: 20050107
  Serious: Yes (Other)
  Sender: FDA-Public Use
  Company Number: HQWYE438514JUN04

PATIENT
  Age: 12 Year
  Sex: Male

DRUGS (3)
  1. RAPAMUNE [Suspect]
     Indication: RENAL TRANSPLANT
     Dosage: 3 MG 1X PER 1 DAY ORAL
     Route: 048
  2. TACROLIMUS (TACROLIMUS) [Concomitant]
  3. PREDNISONE TAB [Concomitant]

REACTIONS (1)
  - HAEMOLYTIC ANAEMIA [None]
